FAERS Safety Report 8209796-4 (Version None)
Quarter: 2012Q1

REPORT INFORMATION
  Report Type: 
  Country: None (occurrence: None)
  Receive Date: 20120314
  Receipt Date: 20120309
  Transmission Date: 20120608
  Serious: Yes (Disabling)
  Sender: FDA-Public Use
  Company Number: JP-PFIZER INC-2012033429

PATIENT
  Age: 46 Year
  Sex: Female

DRUGS (6)
  1. ASVERIN [Concomitant]
     Dosage: 60 MG/DAY
     Route: 048
     Dates: start: 20120105
  2. DEPAS [Concomitant]
     Dosage: 0.5 MG/DAY
     Route: 048
     Dates: start: 20120105
  3. ZITHROMAX [Suspect]
     Indication: NASOPHARYNGITIS
     Dosage: 500 MG/DAY
     Route: 048
     Dates: start: 20120105, end: 20120107
  4. ZITHROMAX [Suspect]
     Indication: DYSPNOEA
  5. MUCOSOLVAN [Concomitant]
     Dosage: 45 MG/DAY
     Route: 048
     Dates: start: 20120105
  6. BAKUMONDOUTO [Concomitant]
     Dosage: 27 G/DAY
     Route: 048
     Dates: start: 20120105

REACTIONS (1)
  - ELECTROCARDIOGRAM QT PROLONGED [None]
